FAERS Safety Report 16677557 (Version 2)
Quarter: 2020Q1

REPORT INFORMATION
  Report Type: Spontaneous
  Country: US (occurrence: US)
  Receive Date: 20190807
  Receipt Date: 20200324
  Transmission Date: 20200409
  Serious: Yes (Other)
  Sender: FDA-Public Use
  Company Number: US-BAYER-2019-146740

PATIENT
  Age: 49 Year
  Sex: Female
  Weight: 63.81 kg

DRUGS (2)
  1. MIRENA [Suspect]
     Active Substance: LEVONORGESTREL
     Indication: CONTRACEPTION
     Dosage: 20 ?G PER DAY, CONTINUOUSLY
     Route: 015
     Dates: start: 20170912, end: 20190724
  2. MIRENA [Suspect]
     Active Substance: LEVONORGESTREL
     Indication: MENORRHAGIA
     Dosage: 20 ?G PER DAY, CONTINUOUSLY
     Route: 015
     Dates: start: 20190724, end: 20190814

REACTIONS (10)
  - Device dislocation [Recovered/Resolved]
  - Uterine haemorrhage [Not Recovered/Not Resolved]
  - Vaginal haemorrhage [None]
  - Abdominal pain lower [None]
  - Embedded device [None]
  - Dyspareunia [None]
  - Medical device discomfort [None]
  - Uterine haemorrhage [Not Recovered/Not Resolved]
  - Pelvic pain [None]
  - Ovarian cyst [None]

NARRATIVE: CASE EVENT DATE: 2017
